FAERS Safety Report 9280514 (Version 1)
Quarter: 2013Q2

REPORT INFORMATION
  Report Type: Spontaneous
  Country: US (occurrence: None)
  Receive Date: 20130507
  Receipt Date: 20130507
  Transmission Date: 20140414
  Serious: Yes (Hospitalization)
  Sender: FDA-Public Use
  Company Number: None

PATIENT
  Age: 28 Year
  Sex: Female
  Weight: 99.8 kg

DRUGS (2)
  1. LORAZEPAM [Suspect]
     Indication: BIPOLAR I DISORDER
     Route: 048
     Dates: start: 20110706
  2. ACETAMINOPHEN/OXYCODONE [Suspect]
     Indication: PAIN
     Route: 048
     Dates: start: 20120529, end: 20130409

REACTIONS (5)
  - Somnolence [None]
  - Gait disturbance [None]
  - Anxiety [None]
  - Confusional state [None]
  - Sedation [None]
